FAERS Safety Report 8878768 (Version 1)
Quarter: 2012Q4

REPORT INFORMATION
  Report Type: Report from Study
  Country: CN (occurrence: CN)
  Receive Date: 20121026
  Receipt Date: 20121026
  Transmission Date: 20130627
  Serious: Yes (Hospitalization, Other)
  Sender: FDA-Public Use
  Company Number: CN-ROCHE-1148546

PATIENT
  Sex: Male

DRUGS (3)
  1. MYCOPHENOLATE MOFETIL [Suspect]
     Indication: RENAL TRANSPLANT
     Route: 048
     Dates: start: 199406
  2. CICLOSPORIN [Concomitant]
     Indication: RENAL TRANSPLANT
     Route: 048
     Dates: start: 199406
  3. STEROID NOS [Concomitant]
     Indication: RENAL TRANSPLANT
     Route: 048

REACTIONS (2)
  - Transplant failure [Recovering/Resolving]
  - Gout [Not Recovered/Not Resolved]
